FAERS Safety Report 9575145 (Version 1)
Quarter: 2013Q4

REPORT INFORMATION
  Report Type: Spontaneous
  Country: US (occurrence: US)
  Receive Date: 20131001
  Receipt Date: 20131001
  Transmission Date: 20140711
  Serious: Yes (Other)
  Sender: FDA-Public Use
  Company Number: US-PFIZER INC-2013273031

PATIENT
  Sex: Female

DRUGS (4)
  1. METHOTREXATE SODIUM [Suspect]
     Dosage: UNK
  2. HUMIRA [Suspect]
     Dosage: TWICE/MONTH IN JANUARY
  3. HUMIRA [Suspect]
     Dosage: FOUR TIME/MONTH IN APRIL
  4. PREDNISONE [Suspect]
     Indication: PAIN

REACTIONS (2)
  - Autoimmune hepatitis [Unknown]
  - Pain [Unknown]
